FAERS Safety Report 6398837-5 (Version None)
Quarter: 2009Q4

REPORT INFORMATION
  Report Type: 
  Country: None (occurrence: None)
  Receive Date: 20091007
  Receipt Date: 20090929
  Transmission Date: 20100525
  Serious: Yes (Other)
  Sender: FDA-Public Use
  Company Number: 2009EU003725

PATIENT
  Age: 74 Year
  Sex: Female

DRUGS (4)
  1. VESICARE [Suspect]
     Indication: HYPERTONIC BLADDER
     Dosage: /D
     Dates: start: 20090630, end: 20090825
  2. LIPITOR [Concomitant]
  3. MOXODIN (MOXONIDINE) [Concomitant]
  4. CLARITINE (LORATADINE) [Concomitant]

REACTIONS (1)
  - HEPATITIS TOXIC [None]
